FAERS Safety Report 9236874 (Version 3)
Quarter: 2014Q2

REPORT INFORMATION
  Report Type: Report from Study
  Country: ES (occurrence: ES)
  Receive Date: 20130417
  Receipt Date: 20140609
  Transmission Date: 20141212
  Serious: Yes (Hospitalization)
  Sender: FDA-Public Use
  Company Number: ES-BRISTOL-MYERS SQUIBB COMPANY-18764472

PATIENT
  Age: 49 Year
  Sex: Female

DRUGS (20)
  1. ATAZANAVIR [Suspect]
     Indication: HIV INFECTION
     Route: 048
     Dates: start: 20120417, end: 20130204
  2. RITONAVIR [Suspect]
     Indication: HIV INFECTION
     Route: 048
     Dates: start: 20120417, end: 20130204
  3. LAMIVUDINE [Suspect]
     Indication: HIV INFECTION
     Route: 048
     Dates: start: 20120417, end: 20130204
  4. TRAZODONE HCL [Concomitant]
     Indication: DEPRESSION
     Route: 048
     Dates: start: 20110712
  5. VENLAFAXINE HCL [Concomitant]
     Indication: DEPRESSION
     Route: 048
     Dates: start: 2010
  6. LAMOTRIGINE [Concomitant]
     Indication: PERSONALITY CHANGE
     Route: 048
     Dates: start: 2010
  7. CLONAZEPAM [Concomitant]
     Indication: PERSONALITY CHANGE
     Route: 048
     Dates: start: 2010
  8. LORAZEPAM [Concomitant]
     Indication: PERSONALITY CHANGE
     Route: 048
     Dates: start: 2010
  9. HIDROFEROL [Concomitant]
     Indication: VITAMIN D DEFICIENCY
     Route: 048
     Dates: start: 20121003
  10. NAPROXEN [Concomitant]
     Indication: HEADACHE
     Route: 048
     Dates: start: 20121221
  11. RANITIDINE [Concomitant]
     Route: 042
     Dates: start: 20131206, end: 20131212
  12. ONDANSETRON [Concomitant]
     Indication: VOMITING
     Route: 042
     Dates: start: 20131206, end: 20131212
  13. ENOXAPARIN [Concomitant]
     Indication: PROPHYLAXIS
     Route: 058
     Dates: start: 20131206, end: 20140111
  14. DEXKETOPROFEN TROMETAMOL [Concomitant]
     Indication: ANALGESIC THERAPY
     Route: 042
     Dates: start: 20131206
  15. MORPHINE [Concomitant]
     Indication: ANALGESIC THERAPY
     Dates: start: 20131206, end: 20131211
  16. PARACETAMOL [Concomitant]
     Indication: ANALGESIC THERAPY
     Route: 048
     Dates: start: 20131206
  17. TRAZODONE HCL [Concomitant]
     Indication: DEPRESSION
     Route: 048
     Dates: start: 20110712
  18. TAPENTADOL HYDROCHLORIDE [Concomitant]
     Indication: ANALGESIC THERAPY
     Route: 048
     Dates: start: 20131026
  19. OMEPRAZOLE [Concomitant]
     Indication: PROPHYLAXIS
     Route: 048
     Dates: start: 20131205, end: 20131205
  20. ATORVASTATIN [Concomitant]
     Indication: HYPERCHOLESTEROLAEMIA
     Route: 048
     Dates: start: 20130820

REACTIONS (1)
  - Osteonecrosis [Recovered/Resolved]
